FAERS Safety Report 7611398-5 (Version None)
Quarter: 2011Q3

REPORT INFORMATION
  Report Type: 
  Country: None (occurrence: None)
  Receive Date: 20110715
  Receipt Date: 20110707
  Transmission Date: 20111222
  Serious: Yes (Hospitalization)
  Sender: FDA-Public Use
  Company Number: IT-ROCHE-784758

PATIENT
  Sex: Female

DRUGS (5)
  1. ENOXAPARIN SODIUM [Concomitant]
     Dates: start: 20110512, end: 20110514
  2. TORADOL [Suspect]
     Indication: ANALGESIC THERAPY
     Dosage: STRENGTH : 30 MG/ML
     Route: 042
     Dates: start: 20110512, end: 20110513
  3. ACETAMINOPHEN [Suspect]
     Indication: ANALGESIC THERAPY
     Route: 042
     Dates: start: 20110512, end: 20110513
  4. AUGMENTIN '125' [Suspect]
     Indication: ANTIBIOTIC PROPHYLAXIS
     Route: 042
     Dates: start: 20110512, end: 20110515
  5. MORPHINE HCL ELIXIR [Concomitant]
     Dosage: SOLUTION
     Route: 042
     Dates: start: 20110512, end: 20110512

REACTIONS (3)
  - RENAL FAILURE ACUTE [None]
  - HAEMATURIA [None]
  - ANURIA [None]
